FAERS Safety Report 12358428 (Version 1)
Quarter: 2016Q2

REPORT INFORMATION
  Report Type: Spontaneous
  Country: US (occurrence: US)
  Receive Date: 20160512
  Receipt Date: 20160512
  Transmission Date: 20160815
  Serious: No
  Sender: FDA-Public Use
  Company Number: US-PFIZER INC-2016217093

PATIENT
  Sex: Male

DRUGS (1)
  1. CARDURA [Suspect]
     Active Substance: DOXAZOSIN MESYLATE
     Indication: POLLAKIURIA

REACTIONS (3)
  - Libido decreased [Not Recovered/Not Resolved]
  - Ejaculation disorder [Not Recovered/Not Resolved]
  - Product use issue [Not Recovered/Not Resolved]
